FAERS Safety Report 8180698-5 (Version None)
Quarter: 2012Q1

REPORT INFORMATION
  Report Type: 
  Country: None (occurrence: None)
  Receive Date: 20120302
  Receipt Date: 20120228
  Transmission Date: 20120608
  Serious: Yes (Death, Hospitalization)
  Sender: FDA-Public Use
  Company Number: NL-JNJFOC-20120214206

PATIENT
  Sex: Female
  Weight: 60 kg

DRUGS (33)
  1. RITUXIMAB [Suspect]
     Route: 042
  2. NEUPOGEN [Suspect]
     Indication: B-CELL LYMPHOMA
     Route: 058
  3. NEUPOGEN [Suspect]
     Route: 058
  4. PREDNISONE TAB [Suspect]
     Indication: B-CELL LYMPHOMA
     Route: 048
  5. PREDNISONE TAB [Suspect]
     Route: 048
  6. CYCLOPHOSPHAMIDE [Suspect]
     Route: 042
  7. CYCLOPHOSPHAMIDE [Suspect]
     Route: 042
  8. VINCRISTINE [Suspect]
     Indication: B-CELL LYMPHOMA
     Route: 042
  9. VINCRISTINE [Suspect]
     Route: 042
  10. NEUPOGEN [Suspect]
     Route: 058
  11. DOXORUBICIN HCL [Suspect]
     Route: 042
  12. RITUXIMAB [Suspect]
     Route: 042
  13. NEUPOGEN [Concomitant]
     Indication: CHEMOTHERAPY
     Route: 058
     Dates: start: 20110629
  14. NEUPOGEN [Suspect]
     Route: 058
  15. RITUXIMAB [Suspect]
     Indication: B-CELL LYMPHOMA
     Route: 042
  16. RITUXIMAB [Suspect]
     Route: 042
     Dates: start: 20110718
  17. CYCLOPHOSPHAMIDE [Suspect]
     Route: 042
  18. NEUPOGEN [Suspect]
     Route: 058
     Dates: start: 20110629
  19. RITUXIMAB [Suspect]
     Route: 042
     Dates: end: 20110715
  20. PREDNISONE TAB [Suspect]
     Route: 048
     Dates: start: 20110629
  21. PREDNISONE TAB [Suspect]
     Route: 048
  22. VINCRISTINE [Suspect]
     Route: 042
  23. VINCRISTINE [Suspect]
     Route: 042
  24. VINCRISTINE [Suspect]
     Route: 042
     Dates: start: 20110629
  25. DOXORUBICIN HCL [Suspect]
     Indication: B-CELL LYMPHOMA
     Route: 042
  26. DOXORUBICIN HCL [Suspect]
     Route: 042
  27. DOXORUBICIN HCL [Suspect]
     Route: 042
  28. DOXORUBICIN HCL [Suspect]
     Route: 042
     Dates: start: 20110629
  29. RITUXIMAB [Suspect]
     Route: 042
     Dates: start: 20110629
  30. RITUXIMAB [Suspect]
     Route: 042
  31. PREDNISONE TAB [Suspect]
     Route: 048
  32. CYCLOPHOSPHAMIDE [Suspect]
     Indication: B-CELL LYMPHOMA
     Route: 042
     Dates: start: 20110629
  33. CYCLOPHOSPHAMIDE [Suspect]
     Route: 042

REACTIONS (3)
  - HAEMOGLOBIN DECREASED [None]
  - DEHYDRATION [None]
  - PROGRESSIVE MULTIFOCAL LEUKOENCEPHALOPATHY [None]
